FAERS Safety Report 21545825 (Version 6)
Quarter: 2024Q2

REPORT INFORMATION
  Report Type: Report from Study
  Country: CA (occurrence: CA)
  Receive Date: 20221103
  Receipt Date: 20240609
  Transmission Date: 20240716
  Serious: Yes (Other)
  Sender: FDA-Public Use
  Company Number: CA-JNJFOC-20221061450

PATIENT
  Age: 40 Year
  Sex: Male
  Weight: 103 kg

DRUGS (2)
  1. REMICADE [Suspect]
     Active Substance: INFLIXIMAB
     Indication: Crohn^s disease
     Route: 041
  2. REMICADE [Suspect]
     Active Substance: INFLIXIMAB
     Route: 041
     Dates: start: 20130727

REACTIONS (4)
  - Lupus-like syndrome [Not Recovered/Not Resolved]
  - Lower respiratory tract infection [Unknown]
  - Arthralgia [Not Recovered/Not Resolved]
  - Product dose omission issue [Unknown]

NARRATIVE: CASE EVENT DATE: 20221005
